FAERS Safety Report 7688732-3 (Version None)
Quarter: 2011Q3

REPORT INFORMATION
  Report Type: 
  Country: None (occurrence: None)
  Receive Date: 20110817
  Receipt Date: 20110810
  Transmission Date: 20111222
  Serious: Yes (Hospitalization, Other)
  Sender: FDA-Public Use
  Company Number: CN-GLAXOSMITHKLINE-B0740260A

PATIENT
  Age: 27 Year
  Sex: Male

DRUGS (2)
  1. LAMOTRIGINE [Suspect]
     Indication: EPILEPSY
     Route: 048
     Dates: start: 20101028
  2. VALPROATE SODIUM [Suspect]
     Indication: EPILEPSY
     Route: 048

REACTIONS (7)
  - GENERALISED ERYTHEMA [None]
  - TOXIC EPIDERMAL NECROLYSIS [None]
  - PAIN IN EXTREMITY [None]
  - PRURITUS [None]
  - RASH ERYTHEMATOUS [None]
  - OEDEMA PERIPHERAL [None]
  - PYREXIA [None]
